FAERS Safety Report 14096969 (Version 1)
Quarter: 2017Q4

REPORT INFORMATION
  Report Type: Spontaneous
  Country: US (occurrence: None)
  Receive Date: 20171016
  Receipt Date: 20171016
  Transmission Date: 20180321
  Serious: Yes (Life-Threatening)
  Sender: FDA-Public Use
  Company Number: None

PATIENT
  Age: 58 Year
  Sex: Male

DRUGS (1)
  1. INSULIN [Suspect]
     Active Substance: INSULIN NOS
     Dosage: 10 UNITS ONCE IV
     Route: 042
     Dates: start: 20170830, end: 20170830

REACTIONS (2)
  - Hypoglycaemia [None]
  - Device monitoring procedure not performed [None]

NARRATIVE: CASE EVENT DATE: 20170830
